FAERS Safety Report 15787082 (Version 2)
Quarter: 2019Q1

REPORT INFORMATION
  Report Type: Spontaneous
  Country: CH (occurrence: CH)
  Receive Date: 20190103
  Receipt Date: 20190221
  Transmission Date: 20190417
  Serious: Yes (Death, Hospitalization)
  Sender: FDA-Public Use
  Company Number: CH-ABBVIE-19K-151-2611761-00

PATIENT
  Age: 82 Year
  Sex: Male

DRUGS (1)
  1. HUMIRA [Suspect]
     Active Substance: ADALIMUMAB
     Indication: PYODERMA GANGRENOSUM
     Route: 058
     Dates: start: 20180815, end: 2018

REACTIONS (6)
  - Pain of skin [Unknown]
  - Off label use [Unknown]
  - Rash [Recovered/Resolved]
  - Skin necrosis [Unknown]
  - Angiodermatitis [Unknown]
  - Death [Fatal]

NARRATIVE: CASE EVENT DATE: 201811
